FAERS Safety Report 10394134 (Version 1)
Quarter: 2014Q3

REPORT INFORMATION
  Report Type: Spontaneous
  Country: JP (occurrence: JP)
  Receive Date: 20140819
  Receipt Date: 20140819
  Transmission Date: 20150326
  Serious: Yes (Death, Other)
  Sender: FDA-Public Use
  Company Number: PHHY2011JP122365

PATIENT
  Age: 72 Year
  Sex: Male

DRUGS (9)
  1. GLIVEC [Suspect]
     Active Substance: IMATINIB MESYLATE
     Dosage: 400 MG, UNK
  2. METHOTREXATE [Concomitant]
     Active Substance: METHOTREXATE
     Dosage: 15 MG, UNK
  3. CYCLOPHOSPHAMIDE. [Concomitant]
     Active Substance: CYCLOPHOSPHAMIDE
     Dosage: 800 MG/M2, UNK
  4. VINCRISTINE [Concomitant]
     Active Substance: VINCRISTINE
     Dosage: 2 MG PER BODY
     Dates: start: 200509
  5. DECADRON (DEXAMETHASONE SODIUM PHOSPHATE) [Concomitant]
     Active Substance: DEXAMETHASONE SODIUM PHOSPHATE
     Dosage: 4 MG, UNK
  6. DAUNORUBICIN [Concomitant]
     Active Substance: DAUNORUBICIN
     Dosage: 30 MG/M2, UNK
     Dates: start: 200509
  7. GLIVEC [Suspect]
     Active Substance: IMATINIB MESYLATE
     Indication: ACUTE LYMPHOCYTIC LEUKAEMIA
     Dosage: 400 MG, DAILY
  8. GLIVEC [Suspect]
     Active Substance: IMATINIB MESYLATE
     Dosage: 600 MG, UNK
  9. CYTARABINE. [Concomitant]
     Active Substance: CYTARABINE
     Dosage: 75 MG/M2, UNK

REACTIONS (7)
  - Vomiting [Unknown]
  - Chromosome analysis abnormal [Unknown]
  - Recurrent cancer [Unknown]
  - Acute lymphocytic leukaemia [Unknown]
  - White blood cell disorder [Unknown]
  - Disease progression [Fatal]
  - Malignant neoplasm progression [Unknown]
